FAERS Safety Report 5460994-2 (Version None)
Quarter: 2007Q3

REPORT INFORMATION
  Report Type: 
  Country: None (occurrence: None)
  Receive Date: 20070822
  Receipt Date: 20070619
  Transmission Date: 20080115
  Serious: Yes (Other)
  Sender: FDA-Public Use
  Company Number: 2007050423

PATIENT
  Age: 52 Year
  Sex: Female
  Weight: 53.1 kg

DRUGS (1)
  1. NORVASC [Suspect]

REACTIONS (1)
  - OEDEMA [None]
